FAERS Safety Report 12455987 (Version 1)
Quarter: 2016Q2

REPORT INFORMATION
  Report Type: Spontaneous
  Country: US (occurrence: US)
  Receive Date: 20160610
  Receipt Date: 20160610
  Transmission Date: 20160815
  Serious: No
  Sender: FDA-Public Use
  Company Number: GXBR2016US001123

PATIENT
  Age: 52 Year
  Sex: Female
  Weight: 92.97 kg

DRUGS (2)
  1. ONDANSETRON [Suspect]
     Active Substance: ONDANSETRON
     Indication: PROCEDURAL NAUSEA
     Dosage: 8 MG, Q6H
     Route: 060
     Dates: start: 20160324, end: 20160324
  2. LEVOTHYROXINE. [Concomitant]
     Active Substance: LEVOTHYROXINE
     Indication: HYPOTHYROIDISM
     Dosage: UNK DF, UNK

REACTIONS (7)
  - Rash [Recovered/Resolved]
  - Salivary hypersecretion [Recovered/Resolved]
  - Secretion discharge [Recovered/Resolved]
  - Feeling jittery [Recovered/Resolved]
  - Nasal pruritus [Recovered/Resolved]
  - Agitation [Recovered/Resolved]
  - Throat tightness [Recovered/Resolved]

NARRATIVE: CASE EVENT DATE: 20160324
